FAERS Safety Report 8100813-9 (Version None)
Quarter: 2012Q1

REPORT INFORMATION
  Report Type: 
  Country: None (occurrence: None)
  Receive Date: 20120129
  Receipt Date: 20111014
  Transmission Date: 20120608
  Serious: No
  Sender: FDA-Public Use
  Company Number: US-ABBOTT-11P-163-0864624-00

PATIENT
  Age: 46 Year
  Sex: Female

DRUGS (21)
  1. KLONOPIN [Concomitant]
     Indication: ANXIETY
     Dosage: 0.5 MG - TWICE DAILY AS NEEDED
  2. FLEXERIL [Concomitant]
     Indication: MUSCLE SPASMS
  3. VALTREX [Concomitant]
     Indication: HERPES ZOSTER
  4. VITAMIN D [Concomitant]
     Dosage: 1.25 MG - THREE TIMES A WEEK
  5. OLUX E [Concomitant]
     Indication: PSORIASIS
  6. NIZATIDINE [Concomitant]
     Indication: GASTRIC PH DECREASED
  7. NASONEX [Concomitant]
     Indication: HYPERSENSITIVITY
     Dosage: 1 SPRAY IN EACH NOSTRIL - TWICE DAILY
  8. DERMA-SMOOTHE/FS [Concomitant]
     Indication: PSORIASIS
     Dosage: SCALP OIL
  9. TOPAMAX [Concomitant]
     Indication: MIGRAINE
  10. AMBIEN [Concomitant]
     Indication: PRODUCT USED FOR UNKNOWN INDICATION
     Dosage: 10 MG - AT BEDTIME
  11. HUMIRA [Suspect]
     Indication: PSORIASIS
     Dates: start: 20110805
  12. MELOXICAM [Concomitant]
     Indication: BACK PAIN
  13. KETOCONAZOLE [Concomitant]
     Indication: PRODUCT USED FOR UNKNOWN INDICATION
  14. MAXALT [Concomitant]
     Indication: MIGRAINE
     Dosage: 5 MG - ONCE DAILY AS NEEDED
  15. TACLONEX [Concomitant]
     Indication: PSORIASIS
     Route: 061
  16. VARIOUS VITAMIN SUPPLEMENTS [Concomitant]
     Indication: GASTRIC BYPASS
  17. STRATTERA [Concomitant]
     Indication: ATTENTION DEFICIT/HYPERACTIVITY DISORDER
  18. VITAMIN D [Concomitant]
     Indication: PRODUCT USED FOR UNKNOWN INDICATION
     Dosage: 400 UNITS TWICE A DAY
  19. DOXEPIN [Concomitant]
     Indication: ANXIETY
  20. PATANASE [Concomitant]
     Indication: HYPERSENSITIVITY
     Dosage: 1 SPRAY IN EACH NOSTRIL - TWICE DAILY
  21. TAZORAC [Concomitant]
     Indication: PSORIASIS

REACTIONS (1)
  - INJECTION SITE PAIN [None]
